FAERS Safety Report 7520885-X (Version None)
Quarter: 2011Q2

REPORT INFORMATION
  Report Type: 
  Country: None (occurrence: None)
  Receive Date: 20110603
  Receipt Date: 20101120
  Transmission Date: 20111010
  Serious: Yes (Other)
  Sender: FDA-Public Use
  Company Number: US-BAYER-201047893GPV

PATIENT
  Age: 60 Year
  Sex: Male

DRUGS (1)
  1. TESTOTERONE [Suspect]
     Indication: HYPOGONADISM
     Dosage: 9 INJECTIONS OVER 84 WEEKS
     Route: 030

REACTIONS (1)
  - PROSTATE CANCER [None]
